FAERS Safety Report 23774439 (Version 1)
Quarter: 2024Q2

REPORT INFORMATION
  Report Type: Report from Study
  Country: US (occurrence: None)
  Receive Date: 20240423
  Receipt Date: 20240423
  Transmission Date: 20240716
  Serious: Yes (Life-Threatening, Other)
  Sender: FDA-Public Use
  Company Number: 2024A094011

PATIENT
  Sex: Male

DRUGS (2)
  1. TAGRISSO [Suspect]
     Active Substance: OSIMERTINIB
     Indication: Non-small cell lung cancer
     Route: 048
     Dates: start: 201806
  2. XGEVA [Suspect]
     Active Substance: DENOSUMAB

REACTIONS (5)
  - Deep vein thrombosis [Unknown]
  - Osteonecrosis of jaw [Unknown]
  - Metastases to bone [Unknown]
  - Fatigue [Unknown]
  - Loss of consciousness [Unknown]
